FAERS Safety Report 5804158-9 (Version None)
Quarter: 2008Q3

REPORT INFORMATION
  Report Type: 
  Country: None (occurrence: None)
  Receive Date: 20080702
  Receipt Date: 20070925
  Transmission Date: 20090109
  Serious: Yes (Life-Threatening, Hospitalization)
  Sender: FDA-Public Use
  Company Number: HQWYE337726SEP07

PATIENT
  Sex: Female

DRUGS (1)
  1. IBUPROFEN TABLETS [Suspect]
     Indication: MALAISE
     Dosage: ORAL
     Route: 048

REACTIONS (2)
  - STEVENS-JOHNSON SYNDROME [None]
  - TOXIC EPIDERMAL NECROLYSIS [None]
